FAERS Safety Report 8071004-5 (Version None)
Quarter: 2011Q4

REPORT INFORMATION
  Report Type: 
  Country: None (occurrence: None)
  Receive Date: 20111221
  Receipt Date: 20110920
  Transmission Date: 20120403
  Serious: Yes (Hospitalization, Other)
  Sender: FDA-Public Use
  Company Number: PHEH2011US04792

PATIENT
  Age: 58 Year
  Sex: Female
  Weight: 64.9 kg

DRUGS (1)
  1. EXJADE [Suspect]
     Indication: IRON METABOLISM DISORDER
     Dosage: 750 MG, DAILY, ORAL
     Route: 048
     Dates: start: 20101005

REACTIONS (2)
  - HEPATIC ENZYME INCREASED [None]
  - SERUM FERRITIN INCREASED [None]
